FAERS Safety Report 4663026-9 (Version None)
Quarter: 2005Q2

REPORT INFORMATION
  Report Type: 
  Country: None (occurrence: None)
  Receive Date: 20050513
  Receipt Date: 20050509
  Transmission Date: 20051028
  Serious: Yes (Other)
  Sender: FDA-Public Use
  Company Number: GBWYE456224FEB05

PATIENT
  Age: 45 Year
  Sex: Female

DRUGS (4)
  1. EFFEXOR XR [Suspect]
     Indication: DEPRESSION
     Dosage: 4 X 150 MG CAPSULES IN OVERDOSE
     Route: 048
     Dates: start: 20041218, end: 20041218
  2. CO-CODAMOL (CODEINE PHOSPHATE/PARACETAMOL) [Concomitant]
  3. TYLOX (OXYCODONE HYDROCHLORIDE/OXYCODONE TEREPHTHALATE/PARACETAMOL) [Concomitant]
  4. DIAZEPAM [Concomitant]

REACTIONS (7)
  - ACCIDENTAL OVERDOSE [None]
  - ASTHENIA [None]
  - CONFUSIONAL STATE [None]
  - DISORIENTATION [None]
  - INAPPROPRIATE SCHEDULE OF DRUG ADMINISTRATION [None]
  - LETHARGY [None]
  - SOMNOLENCE [None]
